FAERS Safety Report 6810304-0 (Version None)
Quarter: 2010Q2

REPORT INFORMATION
  Report Type: 
  Country: None (occurrence: None)
  Receive Date: 20100630
  Receipt Date: 20100615
  Transmission Date: 20101027
  Serious: Yes (Other)
  Sender: FDA-Public Use
  Company Number: US-SHIRE-SPV1-2010-01112

PATIENT

DRUGS (3)
  1. INTUNIV [Suspect]
     Indication: ATTENTION DEFICIT/HYPERACTIVITY DISORDER
     Dosage: 1 MG, 1X/DAY:QD
     Route: 048
     Dates: start: 20100604, end: 20100608
  2. INTUNIV [Suspect]
     Dosage: 2 MG, 1X/DAY:QD
     Route: 048
     Dates: start: 20100609, end: 20100612
  3. FLOVENT [Concomitant]
     Indication: ASTHMA
     Dosage: 2 UG, 2X/DAY:BID (2 PUFFS)
     Route: 055
     Dates: start: 20070101

REACTIONS (3)
  - DIZZINESS [None]
  - HYPOTENSION [None]
  - SYNCOPE [None]
